FAERS Safety Report 10048634 (Version 2)
Quarter: 2014Q2

REPORT INFORMATION
  Report Type: Spontaneous
  Country: US (occurrence: None)
  Receive Date: 20140327
  Receipt Date: 20140404
  Transmission Date: 20141212
  Serious: Yes (Hospitalization, Other)
  Sender: FDA-Public Use
  Company Number: UTC-046478

PATIENT
  Age: 66 Year
  Sex: Male
  Weight: 77.56 kg

DRUGS (1)
  1. REMODULIN [Suspect]
     Indication: COR PULMONALE CHRONIC
     Route: 058
     Dates: start: 20090422

REACTIONS (3)
  - Fall [None]
  - Dementia [None]
  - Infusion site haemorrhage [None]
